FAERS Safety Report 5032934-1 (Version None)
Quarter: 2006Q2

REPORT INFORMATION
  Report Type: 
  Country: None (occurrence: None)
  Receive Date: 20060620
  Receipt Date: 20060607
  Transmission Date: 20061013
  Serious: Yes (Death, Other)
  Sender: FDA-Public Use
  Company Number: 163-20785-06030797

PATIENT
  Age: 71 Year
  Sex: Female

DRUGS (3)
  1. THALOMID [Suspect]
     Indication: SKIN DISORDER
     Dosage: 100 MG, QHS, ORAL
     Route: 048
     Dates: start: 20060214, end: 20060314
  2. THALOMID [Suspect]
     Indication: SYSTEMIC SCLEROSIS
     Dosage: 100 MG, QHS, ORAL
     Route: 048
     Dates: start: 20060214, end: 20060314
  3. ANTICOAGULANTS (UNSPECIFIED) [Suspect]
     Indication: SKIN DISORDER

REACTIONS (1)
  - RECTAL HAEMORRHAGE [None]
